FAERS Safety Report 10313835 (Version 3)
Quarter: 2014Q3

REPORT INFORMATION
  Report Type: Spontaneous
  Country: JP (occurrence: JP)
  Receive Date: 20140718
  Receipt Date: 20140818
  Transmission Date: 20150326
  Serious: Yes (Death, Life-Threatening, Hospitalization)
  Sender: FDA-Public Use
  Company Number: JP-TEVA-495274ISR

PATIENT

DRUGS (3)
  1. TRISENOX [Suspect]
     Active Substance: ARSENIC TRIOXIDE
     Dosage: 10 MILLIGRAM DAILY; 2ND TRISENOX AS POSTREMISSION THERAPY
     Route: 042
     Dates: start: 20140618, end: 20140707
  2. TRISENOX [Suspect]
     Active Substance: ARSENIC TRIOXIDE
     Indication: ACUTE PROMYELOCYTIC LEUKAEMIA
     Dosage: 10 MILLIGRAM DAILY; REMISSION INDUCTION THERAPY
     Route: 042
     Dates: start: 20140224, end: 20140328
  3. TRISENOX [Suspect]
     Active Substance: ARSENIC TRIOXIDE
     Dosage: 10 MILLIGRAM DAILY; 1ST TRISENOX AS POSTREMISSION THERAPY
     Route: 042
     Dates: start: 20140423

REACTIONS (2)
  - Cardio-respiratory arrest [Fatal]
  - Cerebral infarction [Fatal]

NARRATIVE: CASE EVENT DATE: 20140708
